FAERS Safety Report 9658092 (Version 1)
Quarter: 2013Q4

REPORT INFORMATION
  Report Type: Spontaneous
  Country: DE (occurrence: DE)
  Receive Date: 20131030
  Receipt Date: 20131030
  Transmission Date: 20140711
  Serious: Yes (Death, Other)
  Sender: FDA-Public Use
  Company Number: PHHY2013DE119449

PATIENT
  Age: 49 Year
  Sex: Male

DRUGS (2)
  1. HEPARIN [Suspect]
     Indication: ANTICOAGULANT THERAPY
  2. OXYGEN THERAPY [Concomitant]

REACTIONS (5)
  - Cardiac failure [Fatal]
  - Pulmonary oedema [Unknown]
  - Heparin-induced thrombocytopenia [Unknown]
  - Cardiac ventricular thrombosis [Unknown]
  - Atrial thrombosis [Unknown]
